FAERS Safety Report 21728240 (Version 1)
Quarter: 2022Q4

REPORT INFORMATION
  Report Type: Spontaneous
  Country: GR (occurrence: GR)
  Receive Date: 20221214
  Receipt Date: 20221214
  Transmission Date: 20230112
  Serious: Yes (Hospitalization)
  Sender: FDA-Public Use
  Company Number: GR-TEVA-2022-GR-2081031

PATIENT
  Age: 39 Year
  Sex: Male

DRUGS (2)
  1. DOCETAXEL [Suspect]
     Active Substance: DOCETAXEL
     Indication: Keratinising squamous cell carcinoma of nasopharynx
     Dosage: UNK
     Route: 065
  2. CARBOPLATIN [Suspect]
     Active Substance: CARBOPLATIN
     Indication: Keratinising squamous cell carcinoma of nasopharynx
     Dosage: UNK
     Route: 065

REACTIONS (2)
  - Hepatic necrosis [Unknown]
  - Eosinophilia [Unknown]
